FAERS Safety Report 10111901 (Version 2)
Quarter: 2014Q4

REPORT INFORMATION
  Report Type: Other
  Country: US (occurrence: US)
  Receive Date: 20140425
  Receipt Date: 20141024
  Transmission Date: 20150528
  Serious: Yes (Hospitalization, Other)
  Sender: FDA-Public Use
  Company Number: US-GSKPPD-2014GSK008536

PATIENT
  Age: 67 Year
  Sex: Female

DRUGS (3)
  1. ECOTRIN [Concomitant]
     Active Substance: ASPIRIN
  2. NIFEDIPINE. [Concomitant]
     Active Substance: NIFEDIPINE
  3. AVANDIA [Suspect]
     Active Substance: ROSIGLITAZONE MALEATE
     Indication: DIABETES MELLITUS
     Dosage: AVANDIA WAS NOT LISTED AMONG THE PATIENT^S RECORDS REVIEWED.
     Route: 048

REACTIONS (4)
  - Hypertension [Recovered/Resolved]
  - Coronary artery disease [Recovered/Resolved]
  - Peripheral vascular disorder [Recovered/Resolved]
  - Ventricular tachycardia [Unknown]

NARRATIVE: CASE EVENT DATE: 20030519
